FAERS Safety Report 19088883 (Version 1)
Quarter: 2021Q2

REPORT INFORMATION
  Report Type: Spontaneous
  Country: US (occurrence: US)
  Receive Date: 20210403
  Receipt Date: 20210403
  Transmission Date: 20210717
  Serious: No
  Sender: FDA-Public Use
  Company Number: US-AUROBINDO-AUR-APL-2020-030074

PATIENT
  Age: 69 Year
  Sex: Male

DRUGS (1)
  1. PIOGLITAZONE TABLETS USP 30 MG [Suspect]
     Active Substance: PIOGLITAZONE
     Indication: TYPE 2 DIABETES MELLITUS
     Dosage: UNK
     Route: 065
     Dates: start: 201910

REACTIONS (4)
  - Urine output increased [Not Recovered/Not Resolved]
  - Fear of disease [Unknown]
  - Weight increased [Not Recovered/Not Resolved]
  - Therapeutic response unexpected [Unknown]
